FAERS Safety Report 6663386-3 (Version None)
Quarter: 2010Q2

REPORT INFORMATION
  Report Type: 
  Country: None (occurrence: None)
  Receive Date: 20100401
  Receipt Date: 20100321
  Transmission Date: 20101027
  Serious: Yes (Other)
  Sender: FDA-Public Use
  Company Number: US-PFIZER INC-2010037721

PATIENT
  Sex: Male

DRUGS (3)
  1. ZOLOFT [Suspect]
     Indication: ANXIETY
     Dosage: UNK
  2. ZOLOFT [Suspect]
     Indication: DEPRESSION
  3. EFFEXOR [Suspect]

REACTIONS (5)
  - ANXIETY [None]
  - DRUG DEPENDENCE [None]
  - FEAR [None]
  - SENSORY DISTURBANCE [None]
  - TENSION [None]
